FAERS Safety Report 14548842 (Version 1)
Quarter: 2018Q1

REPORT INFORMATION
  Report Type: Spontaneous
  Country: US (occurrence: US)
  Receive Date: 20180219
  Receipt Date: 20180219
  Transmission Date: 20180509
  Serious: No
  Sender: FDA-Public Use
  Company Number: US-ROCHE-1906064

PATIENT
  Sex: Female

DRUGS (1)
  1. NUTROPIN AQ [Suspect]
     Active Substance: SOMATROPIN
     Indication: GENE MUTATION
     Route: 065
     Dates: start: 201605

REACTIONS (1)
  - Injection site pain [Unknown]

NARRATIVE: CASE EVENT DATE: 201605
